FAERS Safety Report 20903798 (Version 2)
Quarter: 2022Q3

REPORT INFORMATION
  Report Type: Report from Study
  Country: US (occurrence: US)
  Receive Date: 20220602
  Receipt Date: 20220728
  Transmission Date: 20221027
  Serious: Yes (Hospitalization, Other)
  Sender: FDA-Public Use
  Company Number: US-BRISTOL-MYERS SQUIBB COMPANY-2022-046980

PATIENT
  Age: 56 Year
  Sex: Female
  Weight: 63.1 kg

DRUGS (2)
  1. ABECMA [Suspect]
     Active Substance: IDECABTAGENE VICLEUCEL
     Indication: Plasma cell myeloma
     Dosage: CAR+T CELLS 1 UNIT
     Route: 065
     Dates: start: 20220509, end: 20220509
  2. ABECMA [Suspect]
     Active Substance: IDECABTAGENE VICLEUCEL

REACTIONS (5)
  - Pyrexia [Recovered/Resolved]
  - Coma [Unknown]
  - Muscular weakness [Unknown]
  - Cytokine release syndrome [Unknown]
  - Headache [Unknown]

NARRATIVE: CASE EVENT DATE: 20220509
